FAERS Safety Report 9252919 (Version 5)
Quarter: 2013Q3

REPORT INFORMATION
  Report Type: Spontaneous
  Country: US (occurrence: US)
  Receive Date: 20130424
  Receipt Date: 20130703
  Transmission Date: 20140515
  Serious: Yes (Hospitalization, Other)
  Sender: FDA-Public Use
  Company Number: US-009507513-1202USA00864

PATIENT
  Sex: Female
  Weight: 73.47 kg

DRUGS (5)
  1. FOSAMAX [Suspect]
     Indication: OSTEOPOROSIS
     Dosage: 10 MG, QD
     Route: 048
     Dates: start: 199704, end: 200110
  2. FOSAMAX [Suspect]
     Dosage: 70 MG, QW
     Route: 048
     Dates: start: 200110
  3. FOSAMAX PLUS D [Suspect]
     Indication: OSTEOPOROSIS
     Dosage: 70 MG, QW
     Route: 048
     Dates: start: 200504
  4. VITAMIN B (UNSPECIFIED) [Concomitant]
     Dosage: UNK
     Dates: start: 1976
  5. SERTRALINE HYDROCHLORIDE [Concomitant]
     Dosage: UNK
     Dates: start: 1980

REACTIONS (26)
  - Intramedullary rod insertion [Unknown]
  - Humerus fracture [Unknown]
  - Fall [Unknown]
  - Neoplasm malignant [Unknown]
  - Anaemia [Unknown]
  - Femur fracture [Unknown]
  - Scapula fracture [Recovering/Resolving]
  - Foot fracture [Unknown]
  - Herpes zoster [Unknown]
  - Vitamin D deficiency [Unknown]
  - Calcium deficiency [Unknown]
  - Rotator cuff syndrome [Unknown]
  - Foot fracture [Recovering/Resolving]
  - Osteoarthritis [Unknown]
  - Radiculopathy [Unknown]
  - Fall [Unknown]
  - Upper limb fracture [Unknown]
  - Fall [Unknown]
  - Body height decreased [Unknown]
  - Kyphosis [Unknown]
  - Wrist fracture [Unknown]
  - Upper limb fracture [Unknown]
  - Osteoarthritis [Unknown]
  - Osteopenia [Unknown]
  - Spinal osteoarthritis [Unknown]
  - Osteoarthritis [Unknown]
